FAERS Safety Report 5967844-6 (Version None)
Quarter: 2008Q4

REPORT INFORMATION
  Report Type: 
  Country: None (occurrence: None)
  Receive Date: 20081126
  Receipt Date: 20081124
  Transmission Date: 20090506
  Serious: Yes (Disabling, Other)
  Sender: FDA-Public Use
  Company Number: CH-BRISTOL-MYERS SQUIBB COMPANY-14415277

PATIENT
  Age: 79 Year
  Sex: Female

DRUGS (4)
  1. ORENCIA [Suspect]
     Indication: RHEUMATOID ARTHRITIS
     Route: 042
     Dates: start: 20080729
  2. SPIRICORT [Concomitant]
  3. METOPROLOL TARTRATE [Concomitant]
  4. COAPROVEL [Concomitant]

REACTIONS (1)
  - VENOUS THROMBOSIS [None]
